FAERS Safety Report 4431085-4 (Version None)
Quarter: 2004Q3

REPORT INFORMATION
  Report Type: 
  Country: None (occurrence: None)
  Receive Date: 20040817
  Receipt Date: 20040802
  Transmission Date: 20050211
  Serious: Yes (Life-Threatening)
  Sender: FDA-Public Use
  Company Number: 2004SE04319

PATIENT
  Age: 55 Year
  Sex: Female

DRUGS (11)
  1. SEROQUEL [Suspect]
     Indication: SCHIZOPHRENIA
     Dosage: 25 MG BID PO
     Route: 048
     Dates: start: 20040525, end: 20040526
  2. SEROQUEL [Suspect]
     Indication: SCHIZOPHRENIA
     Dosage: 50 MG BID PO
     Route: 048
     Dates: start: 20040527, end: 20040527
  3. SEROQUEL [Suspect]
     Indication: SCHIZOPHRENIA
     Dosage: 100 MG BID PO
     Route: 048
     Dates: start: 20040528, end: 20040528
  4. SEROQUEL [Suspect]
     Indication: SCHIZOPHRENIA
     Dosage: 150  MG BID PO
     Route: 048
     Dates: start: 20040529, end: 20040529
  5. SEROQUEL [Suspect]
     Indication: SCHIZOPHRENIA
     Dosage: 200  MG BID PO
     Route: 048
     Dates: start: 20040530, end: 20040530
  6. SEROQUEL [Suspect]
     Indication: SCHIZOPHRENIA
     Dosage: 300 MG BID PO
     Route: 048
     Dates: start: 20040531, end: 20040622
  7. SEROQUEL [Suspect]
     Indication: SCHIZOPHRENIA
     Dosage: 1000 MG BID PO
     Route: 048
     Dates: start: 20040623, end: 20040712
  8. NOZINAN [Concomitant]
  9. PHENERGAN HCL [Concomitant]
  10. IMOVANE [Concomitant]
  11. AKINETON [Concomitant]

REACTIONS (11)
  - ABNORMAL CHEST SOUND [None]
  - AGRANULOCYTOSIS [None]
  - C-REACTIVE PROTEIN INCREASED [None]
  - COUGH [None]
  - FEELING ABNORMAL [None]
  - HOARSENESS [None]
  - NEUTROPHIL COUNT DECREASED [None]
  - PHARYNGEAL ERYTHEMA [None]
  - PYREXIA [None]
  - SEPSIS [None]
  - SPUTUM DISCOLOURED [None]
